FAERS Safety Report 10757787 (Version 1)
Quarter: 2015Q1

REPORT INFORMATION
  Report Type: Spontaneous
  Country: US (occurrence: None)
  Receive Date: 20150202
  Receipt Date: 20150202
  Transmission Date: 20150721
  Serious: No
  Sender: FDA-Public Use
  Company Number: None

PATIENT
  Age: 33 Year
  Sex: Female
  Weight: 72.58 kg

DRUGS (1)
  1. MIRENA [Suspect]
     Active Substance: LEVONORGESTREL

REACTIONS (9)
  - Libido decreased [None]
  - Fatigue [None]
  - Mood swings [None]
  - Hair growth abnormal [None]
  - Headache [None]
  - Acne [None]
  - Vaginal haemorrhage [None]
  - Vaginal discharge [None]
  - Weight increased [None]

NARRATIVE: CASE EVENT DATE: 20150131
